FAERS Safety Report 6543159-2 (Version None)
Quarter: 2010Q1

REPORT INFORMATION
  Report Type: 
  Country: None (occurrence: None)
  Receive Date: 20100120
  Receipt Date: 20100113
  Transmission Date: 20100710
  Serious: Yes (Hospitalization)
  Sender: FDA-Public Use
  Company Number: US-RB-020463-09

PATIENT
  Age: 28 Year
  Sex: Male

DRUGS (2)
  1. SUBOXONE [Suspect]
     Indication: DRUG USE FOR UNKNOWN INDICATION
     Dosage: DOSING INFORMATION UNKNOWN
     Route: 065
  2. SUBOXONE [Suspect]
     Dosage: DOSING INFORMATION UNKNOWN
     Route: 065

REACTIONS (14)
  - ARTHRALGIA [None]
  - CONSTIPATION [None]
  - DRUG WITHDRAWAL SYNDROME [None]
  - EMOTIONAL DISORDER [None]
  - FALL [None]
  - FEELING ABNORMAL [None]
  - GOUT [None]
  - OEDEMA PERIPHERAL [None]
  - PAIN IN EXTREMITY [None]
  - PSYCHOMOTOR HYPERACTIVITY [None]
  - ROAD TRAFFIC ACCIDENT [None]
  - SLEEP APNOEA SYNDROME [None]
  - SOMNAMBULISM [None]
  - SOMNOLENCE [None]
